FAERS Safety Report 4564462-1 (Version None)
Quarter: 2005Q1

REPORT INFORMATION
  Report Type: 
  Country: None (occurrence: None)
  Receive Date: 20050126
  Receipt Date: 20050111
  Transmission Date: 20050727
  Serious: Yes (Hospitalization)
  Sender: FDA-Public Use
  Company Number: F01200401322

PATIENT
  Age: 36 Year
  Sex: Female

DRUGS (6)
  1. OXALIPLATIN - SOLUTION - 130 MG/M2 [Suspect]
     Indication: COLORECTAL CANCER METASTATIC
     Dosage: 130 MG/M2 Q3W INTRAVENOUS NOS
     Route: 042
     Dates: start: 20040505, end: 20040505
  2. (CAPECITABINE) - TABLET - 1000 MG/M2 [Suspect]
     Dosage: 1000 MG/M2 TWICE DAILY FROM D1 TO D14, Q3W
     Route: 048
     Dates: start: 20040505, end: 20040519
  3. MORPHINE SULFATE [Concomitant]
  4. SEVREDOL (MORPHINE SULFATE) [Concomitant]
  5. LACTULOSE [Concomitant]
  6. SENNA [Concomitant]

REACTIONS (6)
  - ABDOMINAL DISTENSION [None]
  - ASCITES [None]
  - DRY MOUTH [None]
  - HEPATIC FAILURE [None]
  - OEDEMA PERIPHERAL [None]
  - SEPSIS [None]
